FAERS Safety Report 26175093 (Version 1)
Quarter: 2025Q4

REPORT INFORMATION
  Report Type: Spontaneous
  Country: AU (occurrence: AU)
  Receive Date: 20251218
  Receipt Date: 20251218
  Transmission Date: 20260118
  Serious: Yes (Other)
  Sender: PTC THERAPEUTICS
  Company Number: AU-PTC THERAPEUTICS INC.-AU-2025PTC000877

PATIENT
  Age: 3 Year
  Sex: Female

DRUGS (1)
  1. ELADOCAGENE EXUPARVOVEC [Suspect]
     Active Substance: ELADOCAGENE EXUPARVOVEC
     Indication: Product used for unknown indication
     Dosage: UNK
     Route: 065
     Dates: start: 20250102, end: 20250102

REACTIONS (1)
  - Clostridium difficile infection [Recovered/Resolved]

NARRATIVE: CASE EVENT DATE: 20250801
